FAERS Safety Report 19091758 (Version 1)
Quarter: 2021Q2

REPORT INFORMATION
  Report Type: Spontaneous
  Country: US (occurrence: US)
  Receive Date: 20210402
  Receipt Date: 20210402
  Transmission Date: 20210717
  Serious: Yes (Disabling)
  Sender: FDA-Public Use
  Company Number: None

PATIENT
  Age: 69 Year
  Sex: Female
  Weight: 98.1 kg

DRUGS (2)
  1. CLONIDINE TRANSDERMAL SYSTEM [Suspect]
     Active Substance: CLONIDINE
     Indication: HYPERTENSION
     Dosage: ?          QUANTITY:1 PATCH(ES);OTHER FREQUENCY:WEEK;?
     Route: 062
     Dates: start: 20210327, end: 20210402
  2. MULTIVITAMIN [Concomitant]
     Active Substance: VITAMINS

REACTIONS (5)
  - Peripheral swelling [None]
  - Product substitution issue [None]
  - Blood pressure increased [None]
  - Application site pruritus [None]
  - Pruritus [None]

NARRATIVE: CASE EVENT DATE: 20210327
